FAERS Safety Report 12580714 (Version 1)
Quarter: 2016Q3

REPORT INFORMATION
  Report Type: Spontaneous
  Country: ID (occurrence: ID)
  Receive Date: 20160721
  Receipt Date: 20160721
  Transmission Date: 20161109
  Serious: Yes (Other)
  Sender: FDA-Public Use
  Company Number: ID-BAYER-2016-136706

PATIENT
  Sex: Male

DRUGS (2)
  1. STIVARGA [Suspect]
     Active Substance: REGORAFENIB
     Indication: METASTASES TO LIVER
  2. STIVARGA [Suspect]
     Active Substance: REGORAFENIB
     Indication: COLORECTAL CANCER METASTATIC
     Dosage: UNK
     Dates: start: 2016, end: 20160707

REACTIONS (8)
  - Pain in extremity [None]
  - Palmar-plantar erythrodysaesthesia syndrome [None]
  - Pain of skin [None]
  - Erythema [None]
  - Hyperkeratosis [None]
  - Drug ineffective [None]
  - Skin burning sensation [None]
  - Carcinoembryonic antigen increased [None]
